FAERS Safety Report 13109249 (Version 3)
Quarter: 2017Q2

REPORT INFORMATION
  Report Type: Spontaneous
  Country: US (occurrence: US)
  Receive Date: 20170112
  Receipt Date: 20170511
  Transmission Date: 20170830
  Serious: Yes (Other)
  Sender: FDA-Public Use
  Company Number: US-TEVA-728927USA

PATIENT
  Sex: Female

DRUGS (8)
  1. TOLTERODINE [Concomitant]
     Active Substance: TOLTERODINE
  2. VENLAFAXINE [Concomitant]
     Active Substance: VENLAFAXINE HYDROCHLORIDE
  3. GABAPENTIN. [Concomitant]
     Active Substance: GABAPENTIN
  4. IBANDRONATE [Concomitant]
     Active Substance: IBANDRONATE SODIUM
  5. ESTRACE [Concomitant]
     Active Substance: ESTRADIOL
  6. BACLOFEN. [Concomitant]
     Active Substance: BACLOFEN
  7. COPAXONE [Suspect]
     Active Substance: GLATIRAMER ACETATE
     Indication: MULTIPLE SCLEROSIS
     Route: 058
     Dates: start: 20140401
  8. LEVOTHYROXINE. [Concomitant]
     Active Substance: LEVOTHYROXINE

REACTIONS (2)
  - Multiple sclerosis relapse [Recovered/Resolved]
  - Drug ineffective [Unknown]
